FAERS Safety Report 21099954 (Version 5)
Quarter: 2022Q4

REPORT INFORMATION
  Report Type: Spontaneous
  Country: JP (occurrence: JP)
  Receive Date: 20220719
  Receipt Date: 20221204
  Transmission Date: 20230113
  Serious: Yes (Other)
  Sender: FDA-Public Use
  Company Number: JP-NOVARTISPH-NVSJ2022JP093985

PATIENT
  Age: 72 Year
  Sex: Male
  Weight: 64 kg

DRUGS (4)
  1. METFORMIN HYDROCHLORIDE\VILDAGLIPTIN [Suspect]
     Active Substance: METFORMIN HYDROCHLORIDE\VILDAGLIPTIN
     Indication: Type 2 diabetes mellitus
     Dosage: 2 T, VILDAGLIPTIN 50 MG, METFORMIN HYDROCHLORIDE 250 MGQD
     Route: 048
     Dates: start: 20170706
  2. IMEGLIMIN [Concomitant]
     Active Substance: IMEGLIMIN
     Indication: Type 2 diabetes mellitus
     Dosage: 1000 MG, BID
     Route: 048
     Dates: start: 20220711
  3. CANAGLIFLOZIN [Concomitant]
     Active Substance: CANAGLIFLOZIN
     Indication: Type 2 diabetes mellitus
     Dosage: 100 MG, QD
     Route: 048
     Dates: start: 20220509
  4. ATORVASTATIN [Concomitant]
     Active Substance: ATORVASTATIN
     Indication: Hyperlipidaemia
     Dosage: 10 MG, QD
     Route: 048
     Dates: start: 20170706

REACTIONS (1)
  - Rectal cancer [Recovered/Resolved]

NARRATIVE: CASE EVENT DATE: 20220422
